FAERS Safety Report 17498896 (Version 1)
Quarter: 2020Q1

REPORT INFORMATION
  Report Type: Spontaneous
  Country: NL (occurrence: NL)
  Receive Date: 20200304
  Receipt Date: 20200304
  Transmission Date: 20200409
  Serious: Yes (Death, Other)
  Sender: FDA-Public Use
  Company Number: NL-MYLANLABS-2020M1023296

PATIENT
  Age: 61 Year
  Sex: Male
  Weight: 80 kg

DRUGS (2)
  1. OLANZAPINE MYLAN [Suspect]
     Active Substance: OLANZAPINE
     Indication: SCHIZOPHRENIA
     Dosage: 1X DAAGS 1 TABLET
     Route: 048
     Dates: start: 2019, end: 2019
  2. OLANZAPINE MYLAN [Suspect]
     Active Substance: OLANZAPINE
     Indication: AFFECTIVE DISORDER

REACTIONS (7)
  - Insomnia [Unknown]
  - Feeling abnormal [Unknown]
  - Hallucination [Unknown]
  - Anxiety [Unknown]
  - Therapeutic response unexpected [Unknown]
  - Completed suicide [Fatal]
  - Restlessness [Unknown]

NARRATIVE: CASE EVENT DATE: 2019
